FAERS Safety Report 6600191-8 (Version None)
Quarter: 2010Q1

REPORT INFORMATION
  Report Type: 
  Country: None (occurrence: None)
  Receive Date: 20100224
  Receipt Date: 20100216
  Transmission Date: 20100710
  Serious: Yes (Hospitalization)
  Sender: FDA-Public Use
  Company Number: B0631337A

PATIENT
  Sex: Male
  Weight: 14.2 kg

DRUGS (27)
  1. ARRANON [Suspect]
     Indication: PRECURSOR T-LYMPHOBLASTIC LYMPHOMA/LEUKAEMIA
     Dosage: 650MGM2 PER DAY
     Route: 042
     Dates: start: 20090716, end: 20090720
  2. ARRANON [Suspect]
     Dosage: 650MGM2 PER DAY
     Route: 042
     Dates: start: 20090806, end: 20090808
  3. CYTARABINE [Concomitant]
     Indication: NEOPLASM MALIGNANT
     Dates: start: 20090702, end: 20090704
  4. ETOPOSIDE [Concomitant]
     Indication: NEOPLASM MALIGNANT
     Dates: start: 20090702, end: 20090706
  5. IDARUBICIN HCL [Concomitant]
     Indication: NEOPLASM MALIGNANT
     Dates: start: 20090702, end: 20090702
  6. SOLDEM 3A [Concomitant]
     Indication: FLUID REPLACEMENT
     Dates: start: 20090630
  7. MEYLON [Concomitant]
     Indication: PROPHYLAXIS
     Dates: start: 20090630
  8. POTASSIUM CHLORIDE [Concomitant]
     Indication: ELECTROLYTE SUBSTITUTION THERAPY
     Dates: start: 20090702, end: 20090718
  9. KAYTWO N [Concomitant]
     Indication: HEPAPLASTIN TEST
     Dates: start: 20090711
  10. ZOSYN [Concomitant]
     Indication: INFECTION
     Route: 042
     Dates: start: 20090710, end: 20090805
  11. MODACIN [Concomitant]
     Indication: INFECTION
     Route: 042
     Dates: start: 20090710, end: 20090728
  12. ISOTONIC SODIUM CHLORIDE SOLUTION [Concomitant]
     Dates: start: 20090710, end: 20090808
  13. NEO-MINOPHAGEN-C [Concomitant]
     Indication: HEPATIC FUNCTION ABNORMAL
     Dates: start: 20090710
  14. NEUART [Concomitant]
     Dates: start: 20090715, end: 20090809
  15. ZOFRAN [Concomitant]
     Indication: VOMITING
     Dates: start: 20090716, end: 20090808
  16. POTASSIUM PHOSPHATES [Concomitant]
     Indication: ELECTROLYTE SUBSTITUTION THERAPY
     Dates: start: 20090718, end: 20090719
  17. NEOLAMIN [Concomitant]
     Indication: VITAMIN SUPPLEMENTATION
     Dates: start: 20090723
  18. FUROSEMIDE [Concomitant]
     Indication: POLYURIA
     Dates: start: 20090807, end: 20090807
  19. GASTER [Concomitant]
     Indication: ABDOMINAL PAIN UPPER
     Dates: start: 20090807
  20. UNKNOWN DRUG [Concomitant]
     Indication: ANALGESIC THERAPY
     Dates: start: 20090808, end: 20090808
  21. ATARAX [Concomitant]
     Indication: ANALGESIC THERAPY
     Dates: start: 20090808, end: 20090808
  22. PLATELETS [Concomitant]
     Indication: TRANSFUSION
     Dates: start: 20090716, end: 20090809
  23. CHLOR-TRIMETON [Concomitant]
     Indication: ALLERGY PROPHYLAXIS
     Dates: start: 20090716, end: 20090809
  24. BAKTAR [Concomitant]
     Indication: INFECTION PROPHYLAXIS
     Route: 048
     Dates: start: 20071109
  25. FUNGIZONE [Concomitant]
     Indication: INFECTION PROPHYLAXIS
     Route: 048
     Dates: start: 20071109
  26. ALLOPURINOL [Concomitant]
     Indication: HYPERURICAEMIA
     Route: 048
     Dates: start: 20081206
  27. ITRIZOLE [Concomitant]
     Indication: BLOOD BETA-D-GLUCAN
     Dates: start: 20090624

REACTIONS (1)
  - RESTLESSNESS [None]
